FAERS Safety Report 5814849-1 (Version None)
Quarter: 2008Q3

REPORT INFORMATION
  Report Type: 
  Country: None (occurrence: None)
  Receive Date: 20080718
  Receipt Date: 20080711
  Transmission Date: 20090109
  Serious: No
  Sender: FDA-Public Use
  Company Number: US-ABBOTT-08P-163-0455351-00

PATIENT
  Sex: Female
  Weight: 65.83 kg

DRUGS (3)
  1. SIMCOR [Suspect]
     Indication: BLOOD CHOLESTEROL INCREASED
     Dosage: 500/20 MG AT BEDTIME
     Route: 048
     Dates: start: 20080501
  2. ACETYLSALICYLIC ACID SRT [Concomitant]
     Indication: PROPHYLAXIS
     Dosage: 81 MG 30 MIN PRIOR TO SIMCOR
     Dates: start: 20080501
  3. IBANDRONATE SODIUM [Concomitant]
     Indication: OSTEOPENIA
     Route: 048
     Dates: start: 20050101

REACTIONS (5)
  - DIZZINESS [None]
  - FLUSHING [None]
  - NAUSEA [None]
  - NIGHT SWEATS [None]
  - VOMITING [None]
